FAERS Safety Report 15145201 (Version 3)
Quarter: 2019Q1

REPORT INFORMATION
  Report Type: Spontaneous
  Country: US (occurrence: US)
  Receive Date: 20180713
  Receipt Date: 20190307
  Transmission Date: 20190417
  Serious: No
  Sender: FDA-Public Use
  Company Number: US-INTERCEPT-PMOCA2018000511

PATIENT

DRUGS (3)
  1. OCALIVA [Suspect]
     Active Substance: OBETICHOLIC ACID
     Indication: PRIMARY BILIARY CHOLANGITIS
     Dosage: 5 MG, QD
     Route: 048
     Dates: start: 20180301, end: 20180607
  2. OCALIVA [Suspect]
     Active Substance: OBETICHOLIC ACID
     Dosage: 10 MG, QD
     Route: 048
     Dates: start: 20180608, end: 20181204
  3. UDCA [Concomitant]
     Active Substance: URSODIOL
     Dosage: 500 MG, BID

REACTIONS (7)
  - Nasopharyngitis [Unknown]
  - Constipation [Recovered/Resolved]
  - Product dose omission [Unknown]
  - Decreased appetite [Unknown]
  - Drug ineffective [Unknown]
  - Head discomfort [Unknown]
  - Dizziness [Recovered/Resolved]

NARRATIVE: CASE EVENT DATE: 2018
